FAERS Safety Report 9729448 (Version 2)
Quarter: 2015Q3

REPORT INFORMATION
  Report Type: Spontaneous
  Country: US (occurrence: US)
  Receive Date: 20131204
  Receipt Date: 20150804
  Transmission Date: 20151125
  Serious: No
  Sender: FDA-Public Use
  Company Number: US-GILEAD-2009-0021479

PATIENT
  Age: 75 Year
  Sex: Female
  Weight: 86.18 kg

DRUGS (22)
  1. LIPITOR [Concomitant]
     Active Substance: ATORVASTATIN CALCIUM
  2. METHYLPREDNISOLONE. [Concomitant]
     Active Substance: METHYLPREDNISOLONE
  3. SYNTHROID [Concomitant]
     Active Substance: LEVOTHYROXINE SODIUM
  4. NEVANAC [Concomitant]
     Active Substance: NEPAFENAC
  5. ALBUTEROL. [Concomitant]
     Active Substance: ALBUTEROL
  6. OMNIPRED [Concomitant]
     Active Substance: PREDNISOLONE ACETATE
  7. ASPIRIN. [Concomitant]
     Active Substance: ASPIRIN
  8. CLINDAMYCIN HCL [Concomitant]
     Active Substance: CLINDAMYCIN HYDROCHLORIDE
  9. CODEINE [Concomitant]
     Active Substance: CODEINE
  10. IMDUR [Concomitant]
     Active Substance: ISOSORBIDE MONONITRATE
  11. CYMBALTA [Concomitant]
     Active Substance: DULOXETINE HYDROCHLORIDE
  12. VIGAMOX [Concomitant]
     Active Substance: MOXIFLOXACIN HYDROCHLORIDE
  13. LASIX [Concomitant]
     Active Substance: FUROSEMIDE
  14. GLUCOTROL [Concomitant]
     Active Substance: GLIPIZIDE
  15. MULTIVITAMIN [Concomitant]
     Active Substance: VITAMINS
  16. LETAIRIS [Suspect]
     Active Substance: AMBRISENTAN
     Indication: PULMONARY ARTERIAL HYPERTENSION
     Route: 048
     Dates: start: 20080317
  17. DIGOXIN. [Concomitant]
     Active Substance: DIGOXIN
  18. DITROPAN [Concomitant]
     Active Substance: OXYBUTYNIN CHLORIDE
  19. ATENOLOL. [Concomitant]
     Active Substance: ATENOLOL
  20. VASOTEC [Concomitant]
     Active Substance: ENALAPRIL MALEATE
  21. NEXIUM [Concomitant]
     Active Substance: ESOMEPRAZOLE MAGNESIUM
  22. VITAMIN B12 [Concomitant]
     Active Substance: CYANOCOBALAMIN

REACTIONS (1)
  - Palpitations [Unknown]
